FAERS Safety Report 11103119 (Version 1)
Quarter: 2015Q2

REPORT INFORMATION
  Report Type: Spontaneous
  Country: US (occurrence: None)
  Receive Date: 20150508
  Receipt Date: 20150508
  Transmission Date: 20150821
  Serious: Yes (Hospitalization)
  Sender: FDA-Public Use
  Company Number: None

PATIENT
  Age: 67 Year
  Sex: Male
  Weight: 63 kg

DRUGS (2)
  1. IBUTILIDE [Suspect]
     Active Substance: IBUTILIDE
     Indication: ATRIAL FIBRILLATION
     Route: 042
     Dates: start: 20110624, end: 20110624
  2. IBUTILIDE [Suspect]
     Active Substance: IBUTILIDE
     Indication: MITRAL VALVE DISEASE
     Route: 042
     Dates: start: 20110624, end: 20110624

REACTIONS (1)
  - Palpitations [None]

NARRATIVE: CASE EVENT DATE: 20110624
